FAERS Safety Report 7519048-3 (Version None)
Quarter: 2011Q2

REPORT INFORMATION
  Report Type: 
  Country: None (occurrence: None)
  Receive Date: 20110602
  Receipt Date: 20110525
  Transmission Date: 20111010
  Serious: Yes (Hospitalization, Other)
  Sender: FDA-Public Use
  Company Number: JP-ROCHE-772399

PATIENT
  Sex: Female

DRUGS (11)
  1. HERCEPTIN [Suspect]
     Indication: BREAST CANCER METASTATIC
     Route: 041
  2. HERCEPTIN [Suspect]
     Route: 041
     Dates: start: 20090128, end: 20110202
  3. PACLITAXEL [Suspect]
     Indication: BREAST CANCER METASTATIC
     Route: 041
     Dates: start: 20100210, end: 20101208
  4. HERCEPTIN [Suspect]
     Route: 041
     Dates: start: 20090119, end: 20090119
  5. AROMASIN [Concomitant]
     Route: 048
     Dates: start: 20110120
  6. LASIX [Concomitant]
     Route: 048
     Dates: start: 20080101
  7. OXYCONTIN [Concomitant]
     Route: 048
     Dates: start: 20080101
  8. LANSOPRAZOLE [Concomitant]
     Route: 048
     Dates: start: 20080101
  9. FEMARA [Concomitant]
     Route: 048
     Dates: start: 20100317, end: 20110119
  10. MICARDIS [Concomitant]
     Route: 048
     Dates: start: 20080101
  11. ASTOMIN [Concomitant]
     Route: 048
     Dates: start: 20080101

REACTIONS (7)
  - FATIGUE [None]
  - METASTASES TO CENTRAL NERVOUS SYSTEM [None]
  - PRURITUS [None]
  - DYSPNOEA [None]
  - COUGH [None]
  - CONVULSION [None]
  - INTERSTITIAL LUNG DISEASE [None]
